FAERS Safety Report 23747295 (Version 1)
Quarter: 2024Q2

REPORT INFORMATION
  Report Type: Spontaneous
  Country: PL (occurrence: None)
  Receive Date: 20240416
  Receipt Date: 20240416
  Transmission Date: 20240715
  Serious: Yes (Life-Threatening, Other)
  Sender: FDA-Public Use
  Company Number: 2024A088883

PATIENT
  Age: 24305 Day
  Sex: Male
  Weight: 95 kg

DRUGS (4)
  1. DAPAGLIFLOZIN [Suspect]
     Active Substance: DAPAGLIFLOZIN
     Indication: Type 2 diabetes mellitus
     Route: 048
     Dates: start: 20240320, end: 20240410
  2. HUMALOG [Concomitant]
     Active Substance: INSULIN LISPRO
     Dosage: 1*30 UNITS. BEFORE THE MAIN MEAL
  3. TOUJEO [Concomitant]
     Active Substance: INSULIN GLARGINE
     Dosage: 35 UNITS. 1*/DAY HOUR.19
  4. GLUCOPHAGE XR [Concomitant]
     Active Substance: METFORMIN HYDROCHLORIDE

REACTIONS (2)
  - Constipation [Unknown]
  - Infrequent bowel movements [Unknown]

NARRATIVE: CASE EVENT DATE: 20240326
